FAERS Safety Report 14670776 (Version 14)
Quarter: 2019Q1

REPORT INFORMATION
  Report Type: Report from Study
  Country: US (occurrence: US)
  Receive Date: 20180322
  Receipt Date: 20190325
  Transmission Date: 20190417
  Serious: Yes (Hospitalization, Other)
  Sender: FDA-Public Use
  Company Number: US-ACTELION-A-NJ2018-169297

PATIENT
  Age: 36 Year
  Sex: Female
  Weight: 61.22 kg

DRUGS (4)
  1. REMODULIN [Suspect]
     Active Substance: TREPROSTINIL
     Indication: PRODUCT USED FOR UNKNOWN INDICATION
     Dosage: UNK
     Route: 058
  2. OPSUMIT [Suspect]
     Active Substance: MACITENTAN
     Indication: PULMONARY HYPERTENSION
     Dosage: 10 MG, QD
     Route: 048
     Dates: start: 20180221, end: 20181026
  3. REMODULIN [Suspect]
     Active Substance: TREPROSTINIL
     Dosage: UNK
     Route: 042
  4. REMODULIN [Suspect]
     Active Substance: TREPROSTINIL
     Dosage: UNK
     Route: 058

REACTIONS (29)
  - Abdominal pain [Unknown]
  - Liver disorder [Unknown]
  - Gastrointestinal tube insertion [Unknown]
  - Hepatic cirrhosis [Recovered/Resolved with Sequelae]
  - Varices oesophageal [Unknown]
  - Acute kidney injury [Unknown]
  - Ascites [Unknown]
  - Malnutrition [Unknown]
  - Fatigue [Unknown]
  - Transfusion [Unknown]
  - Hepatic encephalopathy [Unknown]
  - Hepatic failure [Recovered/Resolved with Sequelae]
  - Epistaxis [Unknown]
  - Nausea [Unknown]
  - Hospitalisation [Unknown]
  - Failure to thrive [Unknown]
  - Urine output decreased [Unknown]
  - Paracentesis [Unknown]
  - White blood cell count decreased [Unknown]
  - Abdominal compartment syndrome [Unknown]
  - Pulmonary hypertension [Unknown]
  - Blood bilirubin increased [Unknown]
  - Infusion site pain [Unknown]
  - Infusion site swelling [Recovering/Resolving]
  - Infusion site erythema [Recovering/Resolving]
  - Liver transplant [Unknown]
  - Dyspnoea [Unknown]
  - Oedema peripheral [Unknown]
  - Mouth haemorrhage [Unknown]

NARRATIVE: CASE EVENT DATE: 20180622
